FAERS Safety Report 21254474 (Version 1)
Quarter: 2022Q3

REPORT INFORMATION
  Report Type: Spontaneous
  Country: US (occurrence: None)
  Receive Date: 20220824
  Receipt Date: 20220824
  Transmission Date: 20221027
  Serious: Yes (Death)
  Sender: FDA-Public Use
  Company Number: None

PATIENT
  Age: 85 Year
  Sex: Female

DRUGS (1)
  1. PROLIA [Suspect]
     Active Substance: DENOSUMAB
     Indication: Osteoporosis
     Dosage: OTHER FREQUENCY : Q6MONTHS;?
     Route: 058
     Dates: start: 20200820, end: 20220824

REACTIONS (1)
  - Death [None]

NARRATIVE: CASE EVENT DATE: 20220824
